FAERS Safety Report 19087372 (Version 2)
Quarter: 2021Q2

REPORT INFORMATION
  Report Type: Spontaneous
  Country: IT (occurrence: IT)
  Receive Date: 20210402
  Receipt Date: 20210507
  Transmission Date: 20210717
  Serious: Yes (Other)
  Sender: FDA-Public Use
  Company Number: IT-BRACCO-2021IT01278

PATIENT
  Age: 51 Year
  Sex: Female

DRUGS (3)
  1. SONOVUE [Suspect]
     Active Substance: SULFUR HEXAFLUORIDE
     Indication: ULTRASOUND SCAN NORMAL
     Dosage: 1.2 ML, SINGLE
     Route: 042
  2. SONOVUE [Suspect]
     Active Substance: SULFUR HEXAFLUORIDE
     Indication: ULTRASOUND SCAN NORMAL
     Dosage: 1.2 ML, SINGLE
     Route: 042
  3. SONOVUE [Suspect]
     Active Substance: SULFUR HEXAFLUORIDE
     Indication: ULTRASOUND SCAN NORMAL
     Dosage: 1.2 ML, SINGLE
     Route: 042

REACTIONS (2)
  - Hypertensive crisis [Recovered/Resolved]
  - Paraesthesia [Recovered/Resolved]

NARRATIVE: CASE EVENT DATE: 20210305
